FAERS Safety Report 15648812 (Version 1)
Quarter: 2018Q4

REPORT INFORMATION
  Report Type: Spontaneous
  Country: US (occurrence: US)
  Receive Date: 20181122
  Receipt Date: 20181122
  Transmission Date: 20190205
  Serious: No
  Sender: FDA-Public Use
  Company Number: US-ASTRAZENECA-2018SF43548

PATIENT
  Age: 22037 Day
  Sex: Male
  Weight: 79.8 kg

DRUGS (2)
  1. FASENRA [Suspect]
     Active Substance: BENRALIZUMAB
     Indication: EOSINOPHIL COUNT ABNORMAL
     Dosage: 30 MG, EVERY 4 WEEKS FOR THE FIRST 3 DOSES THEN EVERY 8 WEEKS
     Route: 058
     Dates: start: 20181030
  2. FASENRA [Suspect]
     Active Substance: BENRALIZUMAB
     Indication: ASTHMA
     Dosage: 30 MG, EVERY 4 WEEKS FOR THE FIRST 3 DOSES THEN EVERY 8 WEEKS
     Route: 058
     Dates: start: 20181030

REACTIONS (2)
  - Rash pruritic [Not Recovered/Not Resolved]
  - Eosinophil count increased [Unknown]

NARRATIVE: CASE EVENT DATE: 20181030
